FAERS Safety Report 18462804 (Version 1)
Quarter: 2020Q4

REPORT INFORMATION
  Report Type: Spontaneous
  Country: LT (occurrence: LT)
  Receive Date: 20201104
  Receipt Date: 20201104
  Transmission Date: 20210114
  Serious: Yes (Other)
  Sender: FDA-Public Use
  Company Number: LT-BIOVITRUM-2020LT6026

PATIENT

DRUGS (1)
  1. KINERET [Suspect]
     Active Substance: ANAKINRA
     Indication: HYPER IGD SYNDROME

REACTIONS (3)
  - Splenic rupture [Unknown]
  - Injury [Unknown]
  - Off label use [Unknown]
